FAERS Safety Report 4752262-9 (Version None)
Quarter: 2005Q3

REPORT INFORMATION
  Report Type: 
  Country: None (occurrence: None)
  Receive Date: 20050825
  Receipt Date: 20050815
  Transmission Date: 20060218
  Serious: Yes (Other)
  Sender: FDA-Public Use
  Company Number: 2005GB01577

PATIENT
  Age: 51 Year
  Sex: Female

DRUGS (4)
  1. TAMOXIFEN CITRATE [Suspect]
     Indication: BREAST CANCER
     Route: 048
     Dates: start: 20041101, end: 20041217
  2. CALCICHEW [Concomitant]
     Indication: OSTEOPENIA
     Route: 048
     Dates: start: 20050116
  3. ZOPICLONE [Concomitant]
     Indication: INSOMNIA
     Route: 048
     Dates: start: 19980703
  4. MEGESTROL [Concomitant]
     Indication: FLUSHING
     Route: 048
     Dates: start: 20050116

REACTIONS (3)
  - FLUSHING [None]
  - HYPERHIDROSIS [None]
  - SINUS TACHYCARDIA [None]
